FAERS Safety Report 13893616 (Version 1)
Quarter: 2017Q3

REPORT INFORMATION
  Report Type: Spontaneous
  Country: US (occurrence: US)
  Receive Date: 20170822
  Receipt Date: 20170822
  Transmission Date: 20171127
  Serious: No
  Sender: FDA-Public Use
  Company Number: US-LEXICON PHARMACEUTICALS, INC-17-1606-00630

PATIENT
  Sex: Male

DRUGS (8)
  1. ZOLPIDEM [Concomitant]
     Active Substance: ZOLPIDEM\ZOLPIDEM TARTRATE
  2. OXYCODONE [Concomitant]
     Active Substance: OXYCODONE
  3. METOPROLOL TART [Concomitant]
     Active Substance: METOPROLOL TARTRATE
  4. OCTREOTIDE. [Concomitant]
     Active Substance: OCTREOTIDE
  5. XGEVA [Concomitant]
     Active Substance: DENOSUMAB
  6. TESTOSTERON [Concomitant]
     Active Substance: TESTOSTERONE
  7. AMLODIPINE [Concomitant]
     Active Substance: AMLODIPINE BESYLATE
  8. TELOTRISTAT ETHYL [Suspect]
     Active Substance: TELOTRISTAT ETHYL
     Indication: CARCINOID TUMOUR OF THE STOMACH
     Route: 048
     Dates: start: 20170614

REACTIONS (1)
  - Metastases to bone [Unknown]

NARRATIVE: CASE EVENT DATE: 2017
